FAERS Safety Report 11345045 (Version 3)
Quarter: 2015Q3

REPORT INFORMATION
  Report Type: Spontaneous
  Country: DK (occurrence: DK)
  Receive Date: 20150806
  Receipt Date: 20150826
  Transmission Date: 20151125
  Serious: Yes (Other)
  Sender: FDA-Public Use
  Company Number: DK-TEVA-582285ISR

PATIENT
  Sex: Male

DRUGS (3)
  1. ARIPIPRAZOLE. [Suspect]
     Active Substance: ARIPIPRAZOLE
     Dosage: 10 MG, UNK
     Route: 048
  2. ARIPIPRAZOLE. [Suspect]
     Active Substance: ARIPIPRAZOLE
     Indication: PRODUCT USED FOR UNKNOWN INDICATION
     Dosage: UNK N/A, UNK
     Route: 048
  3. ABILIFY MAINTENA [Suspect]
     Active Substance: ARIPIPRAZOLE
     Indication: PRODUCT USED FOR UNKNOWN INDICATION
     Dosage: 400 MG, UNK, ALMOST 12 MONTHS
     Route: 030

REACTIONS (6)
  - Suicidal ideation [Unknown]
  - Drug effect decreased [Unknown]
  - Drug resistance [Unknown]
  - Psychotic disorder [Unknown]
  - Disease recurrence [Unknown]
  - Condition aggravated [Unknown]
